FAERS Safety Report 6230998-0 (Version None)
Quarter: 2009Q2

REPORT INFORMATION
  Report Type: 
  Country: None (occurrence: None)
  Receive Date: 20090616
  Receipt Date: 20090608
  Transmission Date: 20091009
  Serious: Yes (Hospitalization)
  Sender: FDA-Public Use
  Company Number: FR-ROCHE-626906

PATIENT
  Age: 61 Year
  Sex: Female

DRUGS (3)
  1. BONIVA [Suspect]
     Indication: OSTEOPOROSIS
     Dosage: RECEIVED ONLY ONE DOSE
     Route: 048
     Dates: start: 20090301, end: 20090301
  2. OROCAL D3 [Concomitant]
     Indication: OSTEOPOROSIS
     Dosage: DOSE: 2 DOSES, FREQUENCY: EVERY DAY
     Route: 048
     Dates: start: 20081215
  3. UVEDOSE [Concomitant]
     Indication: OSTEOPOROSIS
     Route: 048
     Dates: start: 20081215

REACTIONS (3)
  - CHEST PAIN [None]
  - INFLUENZA LIKE ILLNESS [None]
  - PYREXIA [None]
